FAERS Safety Report 19737266 (Version 1)
Quarter: 2021Q3

REPORT INFORMATION
  Report Type: Report from Study
  Country: CA (occurrence: CA)
  Receive Date: 20210823
  Receipt Date: 20210823
  Transmission Date: 20211014
  Serious: Yes (Hospitalization, Other)
  Sender: FDA-Public Use
  Company Number: PHHY2019CA006434

PATIENT
  Sex: Female

DRUGS (5)
  1. COSENTYX [Suspect]
     Active Substance: SECUKINUMAB
     Dosage: 150 MG, QMO
     Route: 058
     Dates: start: 20200724
  2. COSENTYX [Suspect]
     Active Substance: SECUKINUMAB
     Indication: PSORIATIC ARTHROPATHY
     Dosage: 150 MG, QMO
     Route: 058
     Dates: start: 20181218, end: 20200331
  3. METHOTREXATE. [Suspect]
     Active Substance: METHOTREXATE
     Indication: PRODUCT USED FOR UNKNOWN INDICATION
     Dosage: UNK, QW
     Route: 058
     Dates: start: 2007, end: 20210625
  4. SULFASALAZINE. [Concomitant]
     Active Substance: SULFASALAZINE
     Indication: PRODUCT USED FOR UNKNOWN INDICATION
     Dosage: 1 G, QD
     Route: 065
     Dates: start: 2016
  5. OTEZLA [Concomitant]
     Active Substance: APREMILAST
     Indication: PRODUCT USED FOR UNKNOWN INDICATION
     Dosage: UNK
     Route: 065
     Dates: start: 201810, end: 201811

REACTIONS (7)
  - Inflammation [Unknown]
  - Tenosynovitis [Unknown]
  - Musculoskeletal stiffness [Unknown]
  - Thrombocytopenia [Unknown]
  - Delirium tremens [Unknown]
  - Weight increased [Unknown]
  - Joint swelling [Unknown]
